FAERS Safety Report 10270011 (Version 1)
Quarter: 2014Q2

REPORT INFORMATION
  Report Type: Spontaneous
  Country: US (occurrence: None)
  Receive Date: 20140626
  Receipt Date: 20140626
  Transmission Date: 20141212
  Serious: Yes (Death, Other)
  Sender: FDA-Public Use
  Company Number: PR-AE14-000744

PATIENT
  Sex: Female

DRUGS (1)
  1. BC POWDER [Suspect]
     Route: 048

REACTIONS (1)
  - Renal failure [None]
